FAERS Safety Report 18975758 (Version 2)
Quarter: 2021Q2

REPORT INFORMATION
  Report Type: Spontaneous
  Country: HR (occurrence: HR)
  Receive Date: 20210305
  Receipt Date: 20210405
  Transmission Date: 20210717
  Serious: Yes (Other)
  Sender: FDA-Public Use
  Company Number: HR-PFIZER INC-2021221437

PATIENT
  Age: 20 Year
  Sex: Female

DRUGS (3)
  1. LEVETIRACETAM. [Suspect]
     Active Substance: LEVETIRACETAM
     Indication: SUICIDE ATTEMPT
     Dosage: 7.5 G, 1X/DAY
     Route: 048
     Dates: start: 20210130, end: 20210130
  2. LAMOTRIGINE. [Suspect]
     Active Substance: LAMOTRIGINE
     Indication: SUICIDE ATTEMPT
     Dosage: 1500 MG, 1X/DAY
     Route: 048
     Dates: start: 20210130, end: 20210130
  3. OXCARBAZEPINE. [Suspect]
     Active Substance: OXCARBAZEPINE
     Indication: SUICIDE ATTEMPT
     Dosage: 12 G, 1X/DAY
     Route: 048
     Dates: start: 20210130, end: 20210130

REACTIONS (3)
  - Hypotension [Unknown]
  - Suicide attempt [Unknown]
  - Intentional overdose [Unknown]

NARRATIVE: CASE EVENT DATE: 20210130
